FAERS Safety Report 10434252 (Version 1)
Quarter: 2014Q3

REPORT INFORMATION
  Report Type: Spontaneous
  Country: DE (occurrence: DE)
  Receive Date: 20140905
  Receipt Date: 20140905
  Transmission Date: 20150326
  Serious: Yes (Hospitalization)
  Sender: FDA-Public Use
  Company Number: DE-ACTAVIS-2014-19220

PATIENT
  Age: 85 Year
  Sex: Male
  Weight: 99 kg

DRUGS (9)
  1. PIPERACILLIN W/TAZOBACTAM          /01173601/ [Concomitant]
     Indication: UROSEPSIS
     Dosage: 13.5 G, DAILY
     Route: 042
     Dates: start: 20140726
  2. METOPROLOL [Concomitant]
     Active Substance: METOPROLOL
     Indication: CARDIAC FAILURE CHRONIC
     Dosage: 100 MG, DAILY
     Route: 048
     Dates: end: 20140801
  3. TAMSULOSIN [Concomitant]
     Active Substance: TAMSULOSIN
     Indication: GASTROOESOPHAGEAL REFLUX DISEASE
     Dosage: 0.4 MG, DAILY
     Route: 048
  4. ASPIRIN. [Concomitant]
     Active Substance: ASPIRIN
     Indication: CORONARY ARTERY DISEASE
     Dosage: 100 MG, DAILY
     Route: 048
  5. SIMVASTATIN (UNKNOWN) [Suspect]
     Active Substance: SIMVASTATIN
     Indication: CORONARY ARTERY DISEASE
     Dosage: 40 MG, DAILY
     Route: 048
     Dates: end: 20140801
  6. TORASEMID [Concomitant]
     Active Substance: TORSEMIDE
     Indication: CARDIAC FAILURE CHRONIC
     Dosage: 10 MG, DAILY
     Route: 048
  7. OMEPRAZOL                          /00661201/ [Concomitant]
     Active Substance: OMEPRAZOLE
     Indication: GASTROOESOPHAGEAL REFLUX DISEASE
     Dosage: 80 MG, DAILY
     Route: 048
  8. RAMIPRIL. [Concomitant]
     Active Substance: RAMIPRIL
     Indication: CARDIAC FAILURE CHRONIC
     Dosage: 10 MG, DAILY
     Route: 048
  9. TAMSULOSIN [Concomitant]
     Active Substance: TAMSULOSIN
     Indication: BENIGN PROSTATIC HYPERPLASIA

REACTIONS (1)
  - Transaminases increased [Recovering/Resolving]
